FAERS Safety Report 6567101-3 (Version None)
Quarter: 2010Q1

REPORT INFORMATION
  Report Type: 
  Country: None (occurrence: None)
  Receive Date: 20100128
  Receipt Date: 20100114
  Transmission Date: 20100710
  Serious: Yes (Other)
  Sender: FDA-Public Use
  Company Number: 2010000187

PATIENT
  Age: 40 Year
  Sex: Female

DRUGS (2)
  1. TREANDA [Suspect]
     Indication: NON-HODGKIN'S LYMPHOMA
     Dosage: INTRAVENOUS (NOT OTHERWISE SPECIFIED)
     Route: 042
     Dates: end: 20091201
  2. RITUXAN [Concomitant]

REACTIONS (2)
  - BLISTER [None]
  - RASH [None]
